FAERS Safety Report 8986909 (Version 2)
Quarter: 2013Q2

REPORT INFORMATION
  Report Type: Spontaneous
  Country: US (occurrence: US)
  Receive Date: 20121227
  Receipt Date: 20130411
  Transmission Date: 20140414
  Serious: No
  Sender: FDA-Public Use
  Company Number: US-BIOGENIDEC-2012BI062476

PATIENT
  Age: 42 Year
  Sex: Female

DRUGS (1)
  1. TYSABRI [Suspect]
     Indication: MULTIPLE SCLEROSIS
     Route: 042
     Dates: start: 20120920, end: 20121116

REACTIONS (4)
  - Swollen tongue [Recovered/Resolved]
  - Aphthous stomatitis [Recovered/Resolved]
  - Painful respiration [Recovered/Resolved]
  - Hypersensitivity [Recovered/Resolved]
